FAERS Safety Report 14941073 (Version 2)
Quarter: 2018Q2

REPORT INFORMATION
  Report Type: Spontaneous
  Country: US (occurrence: US)
  Receive Date: 20180525
  Receipt Date: 20180605
  Transmission Date: 20180711
  Serious: No
  Sender: FDA-Public Use
  Company Number: US-009507513-1805USA008645

PATIENT
  Sex: Female

DRUGS (1)
  1. NEXPLANON [Suspect]
     Active Substance: ETONOGESTREL
     Dosage: 3 YEAR IMPLANT

REACTIONS (3)
  - Menorrhagia [Unknown]
  - Incorrect drug administration duration [Unknown]
  - Dysmenorrhoea [Unknown]
